FAERS Safety Report 4657092-4 (Version None)
Quarter: 2005Q2

REPORT INFORMATION
  Report Type: 
  Country: None (occurrence: None)
  Receive Date: 20050506
  Receipt Date: 20050422
  Transmission Date: 20051028
  Serious: Yes (Other)
  Sender: FDA-Public Use
  Company Number: 2005064534

PATIENT
  Age: 73 Year
  Sex: Male
  Weight: 95.2554 kg

DRUGS (4)
  1. BEXTRA [Suspect]
     Indication: SHOULDER PAIN
     Dosage: 20 MG (20 MG, 1 IN 1 D), ORAL
     Route: 048
     Dates: start: 20050215, end: 20050101
  2. DRUG, UNSPECIFIED (DRUG, UNSPECIFIED) [Concomitant]
  3. WARFARIN SODIUM [Concomitant]
  4. IBUPROFEN [Concomitant]

REACTIONS (2)
  - NEPHROLITHIASIS [None]
  - ROSACEA [None]
